FAERS Safety Report 23539583 (Version 4)
Quarter: 2025Q2

REPORT INFORMATION
  Report Type: Report from Study
  Country: MX (occurrence: MX)
  Receive Date: 20240219
  Receipt Date: 20250409
  Transmission Date: 20250716
  Serious: Yes (Hospitalization, Other)
  Sender: TAKEDA
  Company Number: MX-TAKEDA-2022TUS011612

PATIENT
  Age: 18 Year
  Sex: Male

DRUGS (9)
  1. ICATIBANT [Suspect]
     Active Substance: ICATIBANT ACETATE
     Indication: Hereditary angioedema
  2. ICATIBANT [Suspect]
     Active Substance: ICATIBANT ACETATE
  3. ICATIBANT [Suspect]
     Active Substance: ICATIBANT ACETATE
  4. ICATIBANT [Suspect]
     Active Substance: ICATIBANT ACETATE
  5. ICATIBANT [Suspect]
     Active Substance: ICATIBANT ACETATE
  6. Tranexamic acide [Concomitant]
     Dosage: 650 MILLIGRAM, Q12H
  7. EPINASTINE [Concomitant]
     Active Substance: EPINASTINE
     Dosage: 20 MILLIGRAM, QD
  8. MONTELUKAST [Concomitant]
     Active Substance: MONTELUKAST
     Indication: Rhinitis
     Dosage: 1 DOSAGE FORM, QD
  9. MONTELUKAST [Concomitant]
     Active Substance: MONTELUKAST
     Indication: Dust allergy

REACTIONS (24)
  - Suicidal ideation [Unknown]
  - Jaw fracture [Unknown]
  - Blindness unilateral [Unknown]
  - Cerebral haemorrhage [Not Recovered/Not Resolved]
  - Forearm fracture [Not Recovered/Not Resolved]
  - Craniofacial fracture [Recovered/Resolved]
  - Skull fracture [Not Recovered/Not Resolved]
  - Hand fracture [Not Recovered/Not Resolved]
  - Pneumocephalus [Not Recovered/Not Resolved]
  - Road traffic accident [Recovering/Resolving]
  - Choroidal effusion [Unknown]
  - Emotional distress [Unknown]
  - Feeling of despair [Unknown]
  - Stress [Unknown]
  - Eye injury [Unknown]
  - Hypersomnia [Not Recovered/Not Resolved]
  - Mood altered [Not Recovered/Not Resolved]
  - Limb injury [Recovered/Resolved]
  - Skin laceration [Recovered/Resolved]
  - Dizziness [Unknown]
  - Product availability issue [Unknown]
  - Incorrect dose administered [Unknown]
  - Expired product administered [Unknown]
  - Post procedural complication [Unknown]

NARRATIVE: CASE EVENT DATE: 20221216
